FAERS Safety Report 9789938 (Version 1)
Quarter: 2013Q4

REPORT INFORMATION
  Report Type: Spontaneous
  Country: PL (occurrence: PL)
  Receive Date: 20131231
  Receipt Date: 20131231
  Transmission Date: 20140711
  Serious: Yes (Life-Threatening, Hospitalization)
  Sender: FDA-Public Use
  Company Number: PL-JNJFOC-20131214289

PATIENT
  Sex: Female
  Weight: 68 kg

DRUGS (2)
  1. DOXORUBICIN HYDROCHLORIDE [Suspect]
     Indication: BREAST CANCER
     Dosage: 80
     Route: 042
     Dates: start: 20130816, end: 20130816
  2. DOCETAXEL [Suspect]
     Indication: BREAST CANCER
     Dosage: 120
     Route: 065
     Dates: start: 20130816, end: 20130816

REACTIONS (3)
  - Agranulocytosis [Recovered/Resolved]
  - Febrile neutropenia [Recovered/Resolved]
  - Thrombocytopenia [Recovered/Resolved]
